FAERS Safety Report 15999045 (Version 1)
Quarter: 2019Q1

REPORT INFORMATION
  Report Type: Spontaneous
  Country: GB (occurrence: GB)
  Receive Date: 20190224
  Receipt Date: 20190224
  Transmission Date: 20190418
  Serious: Yes (Disabling)
  Sender: FDA-Public Use
  Company Number: GB-DEXPHARM-20190132

PATIENT
  Age: 69 Year
  Sex: Female

DRUGS (1)
  1. LOSEC [Suspect]
     Active Substance: OMEPRAZOLE

REACTIONS (1)
  - Mobility decreased [Unknown]
